FAERS Safety Report 5849414-3 (Version None)
Quarter: 2008Q3

REPORT INFORMATION
  Report Type: 
  Country: None (occurrence: None)
  Receive Date: 20080819
  Receipt Date: 20080811
  Transmission Date: 20090109
  Serious: Yes (Hospitalization)
  Sender: FDA-Public Use
  Company Number: US-BAYER-200829670NA

PATIENT
  Age: 54 Year
  Sex: Male

DRUGS (1)
  1. LEUKINE [Suspect]
     Indication: LUNG NEOPLASM MALIGNANT
     Dates: start: 20080730

REACTIONS (2)
  - DYSPNOEA [None]
  - SYNCOPE [None]
